FAERS Safety Report 6449928-1 (Version None)
Quarter: 2009Q4

REPORT INFORMATION
  Report Type: 
  Country: None (occurrence: None)
  Receive Date: 20091123
  Receipt Date: 20091112
  Transmission Date: 20100525
  Serious: Yes (Hospitalization)
  Sender: FDA-Public Use
  Company Number: US-BIOGENIDEC-2009BI036562

PATIENT
  Age: 29 Year
  Sex: Female

DRUGS (1)
  1. TYSABRI [Suspect]
     Indication: MULTIPLE SCLEROSIS
     Route: 042
     Dates: start: 20081218

REACTIONS (12)
  - ABASIA [None]
  - ANAEMIA [None]
  - ATROPHY [None]
  - BACTERIAL INFECTION [None]
  - CENTRAL VENOUS CATHETER REMOVAL [None]
  - HEART RATE INCREASED [None]
  - LIVIDITY [None]
  - PLASMA PROTEIN METABOLISM DISORDER [None]
  - POOR PERIPHERAL CIRCULATION [None]
  - PYREXIA [None]
  - SWELLING [None]
  - THROMBOSIS [None]
